FAERS Safety Report 12249312 (Version 1)
Quarter: 2016Q2

REPORT INFORMATION
  Report Type: Spontaneous
  Country: US (occurrence: None)
  Receive Date: 20160407
  Receipt Date: 20160407
  Transmission Date: 20160815
  Serious: No
  Sender: FDA-Public Use
  Company Number: None

PATIENT
  Age: 74 Year
  Sex: Male

DRUGS (1)
  1. SILDENAFIL 20MG TORRENT [Suspect]
     Active Substance: SILDENAFIL
     Indication: SKIN CANCER
     Route: 048
     Dates: start: 20160303, end: 20160311

REACTIONS (2)
  - Dysphagia [None]
  - Throat tightness [None]

NARRATIVE: CASE EVENT DATE: 20160311
